FAERS Safety Report 24221117 (Version 1)
Quarter: 2024Q3

REPORT INFORMATION
  Report Type: Spontaneous
  Country: AU (occurrence: AU)
  Receive Date: 20240819
  Receipt Date: 20240819
  Transmission Date: 20241017
  Serious: Yes (Death)
  Sender: COLLEGIUM PHARMACEUTICAL
  Company Number: None

PATIENT
  Age: 26 Year
  Sex: Male

DRUGS (4)
  1. NUCYNTA [Interacting]
     Active Substance: TAPENTADOL HYDROCHLORIDE
     Indication: Product used for unknown indication
     Dosage: UNK UNK, UNKNOWN
     Route: 065
  2. DIHYDROCODEINE BITARTRATE [Interacting]
     Active Substance: DIHYDROCODEINE BITARTRATE
     Indication: Product used for unknown indication
     Dosage: UNK, UNKNOWN
     Route: 065
  3. OXYCODONE [Interacting]
     Active Substance: OXYCODONE
     Indication: Product used for unknown indication
     Dosage: UNK, UNKNOWN
     Route: 065
  4. PREGABALIN [Interacting]
     Active Substance: PREGABALIN
     Indication: Product used for unknown indication
     Dosage: UNK, UNKNOWN
     Route: 065

REACTIONS (3)
  - Toxicity to various agents [Fatal]
  - Accident [Fatal]
  - Drug interaction [Fatal]

NARRATIVE: CASE EVENT DATE: 20221031
